FAERS Safety Report 7417579-8 (Version None)
Quarter: 2011Q2

REPORT INFORMATION
  Report Type: 
  Country: None (occurrence: None)
  Receive Date: 20110412
  Receipt Date: 20110412
  Transmission Date: 20111010
  Serious: Yes (Disabling)
  Sender: FDA-Public Use
  Company Number: None

PATIENT
  Age: 82 Year
  Sex: Female
  Weight: 61.2356 kg

DRUGS (1)
  1. LEVOTHYROXINE SODIUM [Suspect]

REACTIONS (3)
  - TREMOR [None]
  - CHEST PAIN [None]
  - DYSKINESIA [None]
